FAERS Safety Report 7303988-4 (Version None)
Quarter: 2011Q1

REPORT INFORMATION
  Report Type: 
  Country: None (occurrence: None)
  Receive Date: 20110221
  Receipt Date: 20110216
  Transmission Date: 20110831
  Serious: Yes (Life-Threatening, Hospitalization, Other)
  Sender: FDA-Public Use
  Company Number: GB-ASTRAZENECA-2011SE09110

PATIENT
  Age: 61 Year
  Sex: Female

DRUGS (9)
  1. ANASTROZOLE [Suspect]
     Indication: BREAST CANCER
     Route: 048
     Dates: end: 20100101
  2. EXEMESTANE [Suspect]
     Indication: BREAST CANCER
     Route: 065
     Dates: start: 20100101
  3. AMOXICILLIN [Concomitant]
  4. RAMIPRIL [Suspect]
     Route: 048
  5. BENDROFLUMETHIAZIDE [Suspect]
     Indication: HYPERTENSION
     Route: 048
  6. LERCANIDIPINE [Suspect]
     Route: 065
  7. ATROVENT [Suspect]
     Route: 065
  8. PREDNISOLONE [Concomitant]
  9. ATORVASTATIN [Suspect]
     Route: 065

REACTIONS (1)
  - HYPONATRAEMIA [None]
